FAERS Safety Report 5503581-X (Version None)
Quarter: 2007Q4

REPORT INFORMATION
  Report Type: 
  Country: None (occurrence: None)
  Receive Date: 20071029
  Receipt Date: 20071012
  Transmission Date: 20080405
  Serious: Yes (Hospitalization)
  Sender: FDA-Public Use
  Company Number: 2007001943

PATIENT
  Age: 52 Year
  Sex: Male

DRUGS (6)
  1. ERLOTINIB (ERLOTINIB) [Suspect]
     Indication: NON-SMALL CELL LUNG CANCER
     Dosage: (150 MG, 1 IN 1 D), ORAL
     Route: 048
     Dates: start: 20070726
  2. MAGNESIUM OXIDE (MAGNESIUM OXIDE) [Concomitant]
  3. NEURONTIN [Concomitant]
  4. TAGAMET [Concomitant]
  5. OXYCONTIN [Concomitant]
  6. IR CODONE [Concomitant]

REACTIONS (4)
  - BACK PAIN [None]
  - CONDITION AGGRAVATED [None]
  - DISEASE PROGRESSION [None]
  - METASTASES TO LIVER [None]
